FAERS Safety Report 11686721 (Version 16)
Quarter: 2016Q4

REPORT INFORMATION
  Report Type: Spontaneous
  Country: US (occurrence: US)
  Receive Date: 20151030
  Receipt Date: 20161018
  Transmission Date: 20170206
  Serious: No
  Sender: FDA-Public Use
  Company Number: US-PFIZER INC-2015369554

PATIENT
  Age: 62 Year
  Sex: Female
  Weight: 50 kg

DRUGS (15)
  1. PREMARIN [Interacting]
     Active Substance: ESTROGENS, CONJUGATED
     Dosage: 1.25 MG, DAILY
     Route: 048
  2. PREMARIN [Interacting]
     Active Substance: ESTROGENS, CONJUGATED
     Indication: VULVOVAGINAL DISCOMFORT
  3. ASPIRIN. [Concomitant]
     Active Substance: ASPIRIN
     Indication: CEREBROVASCULAR ACCIDENT PROPHYLAXIS
     Dosage: 81 MG, DAILY
     Route: 048
     Dates: start: 1985
  4. EVENING PRIMROSE OIL [Concomitant]
     Active Substance: EVENING PRIMROSE OIL
     Indication: ARTHRITIS
     Dosage: 1300 MG, 1X/DAY
     Dates: start: 2010
  5. PREMARIN [Interacting]
     Active Substance: ESTROGENS, CONJUGATED
     Dosage: 0.625 MG, 2X/DAY
     Route: 048
     Dates: start: 201602
  6. PREMARIN [Interacting]
     Active Substance: ESTROGENS, CONJUGATED
     Indication: VULVOVAGINAL PAIN
  7. CLONAZEPAM. [Concomitant]
     Active Substance: CLONAZEPAM
     Indication: MUSCLE SPASMS
     Dosage: 1 MG, 1X/DAY
     Dates: start: 1990
  8. KETOCONAZOLE. [Concomitant]
     Active Substance: KETOCONAZOLE
     Indication: RASH
     Dosage: 2 %, AS NEEDED
     Route: 061
     Dates: start: 2009
  9. NAPROXEN SODIUM. [Concomitant]
     Active Substance: NAPROXEN SODIUM
     Indication: ARTHRITIS
     Dosage: UNK, AS NEEDED
     Dates: start: 2007
  10. PREMARIN [Interacting]
     Active Substance: ESTROGENS, CONJUGATED
     Indication: VULVOVAGINAL DRYNESS
     Dosage: 0.625 MG, 1X/DAY (ONCE AT BED TIME)
     Dates: start: 2008
  11. PREMARIN [Interacting]
     Active Substance: ESTROGENS, CONJUGATED
     Dosage: 0.625 MG, 1X/DAY
     Route: 048
  12. PREMARIN [Suspect]
     Active Substance: ESTROGENS, CONJUGATED
     Indication: ARTIFICIAL MENOPAUSE
     Dosage: 1.25 MG, 1X/DAY
     Route: 048
     Dates: start: 1983
  13. SYNTHROID [Interacting]
     Active Substance: LEVOTHYROXINE SODIUM
     Indication: HORMONE REPLACEMENT THERAPY
     Dosage: 75 UG, DAILY
     Route: 048
     Dates: start: 201602
  14. SYNTHROID [Interacting]
     Active Substance: LEVOTHYROXINE SODIUM
     Indication: HYPOTHYROIDISM
     Dosage: 100 UG 1X/DAY OR SIX TIMES A WEEK
     Route: 048
     Dates: start: 1983, end: 201602
  15. VOLTAREN [Concomitant]
     Active Substance: DICLOFENAC SODIUM
     Indication: ARTHRITIS
     Dosage: 2 MG (1 + 3/4 INCH STRIP), AS NEEDED
     Route: 061
     Dates: start: 2007

REACTIONS (18)
  - Amnesia [Unknown]
  - Malaise [Unknown]
  - Feeling abnormal [Unknown]
  - Insomnia [Unknown]
  - Product quality issue [Unknown]
  - Hormone level abnormal [Unknown]
  - Malabsorption [Unknown]
  - Product use issue [Unknown]
  - Drug dose omission [Unknown]
  - Dry skin [Unknown]
  - Drug ineffective [Unknown]
  - Sleep disorder [Not Recovered/Not Resolved]
  - Drug interaction [Unknown]
  - Alopecia [Unknown]
  - Pollakiuria [Unknown]
  - Circadian rhythm sleep disorder [Not Recovered/Not Resolved]
  - Confusional state [Unknown]
  - Weight fluctuation [Unknown]
